FAERS Safety Report 8451324-2 (Version None)
Quarter: 2012Q2

REPORT INFORMATION
  Report Type: 
  Country: None (occurrence: None)
  Receive Date: 20120620
  Receipt Date: 20120312
  Transmission Date: 20120825
  Serious: No
  Sender: FDA-Public Use
  Company Number: US-VERTEX PHARMACEUTICALS INC.-AE-2012-002707

PATIENT
  Sex: Male
  Weight: 112.14 kg

DRUGS (3)
  1. RIBAVIRIN [Concomitant]
     Indication: HEPATITIS C
     Route: 048
     Dates: start: 20120104
  2. PEAGSYS [Concomitant]
     Indication: HEPATITIS C
     Route: 058
     Dates: start: 20120104
  3. INCIVEK [Suspect]
     Indication: HEPATITIS C
     Route: 048
     Dates: start: 20120104

REACTIONS (4)
  - GLUCOSE TOLERANCE IMPAIRED [None]
  - PAROSMIA [None]
  - DYSGEUSIA [None]
  - FATIGUE [None]
